FAERS Safety Report 18789693 (Version 3)
Quarter: 2022Q1

REPORT INFORMATION
  Report Type: Spontaneous
  Country: JP (occurrence: JP)
  Receive Date: 20210126
  Receipt Date: 20220327
  Transmission Date: 20220424
  Serious: Yes (Hospitalization, Other)
  Sender: FDA-Public Use
  Company Number: JP-JNJFOC-20210128573

PATIENT
  Age: 37 Year
  Sex: Female

DRUGS (35)
  1. OPSUMIT [Suspect]
     Active Substance: MACITENTAN
     Indication: Pulmonary arterial hypertension
     Route: 048
  2. UPTRAVI [Suspect]
     Active Substance: SELEXIPAG
     Indication: Pulmonary arterial hypertension
     Route: 048
     Dates: start: 20190109, end: 20190116
  3. UPTRAVI [Suspect]
     Active Substance: SELEXIPAG
     Dosage: DOSE UNKNOWN, GRADUALLY INCREASED
     Route: 048
     Dates: start: 20190117, end: 20190315
  4. UPTRAVI [Suspect]
     Active Substance: SELEXIPAG
     Route: 048
     Dates: start: 20190316, end: 20190816
  5. UPTRAVI [Suspect]
     Active Substance: SELEXIPAG
     Route: 048
     Dates: start: 20190817, end: 20191101
  6. UPTRAVI [Suspect]
     Active Substance: SELEXIPAG
     Route: 048
     Dates: start: 20191102, end: 20191206
  7. UPTRAVI [Suspect]
     Active Substance: SELEXIPAG
     Route: 048
     Dates: start: 20191207, end: 20200110
  8. UPTRAVI [Suspect]
     Active Substance: SELEXIPAG
     Route: 048
     Dates: start: 20200111
  9. LITHIUM CARBONATE [Suspect]
     Active Substance: LITHIUM CARBONATE
     Indication: Product used for unknown indication
     Dosage: DOSE UNKNOWN
     Route: 048
     Dates: end: 20200428
  10. LITHIUM CARBONATE [Suspect]
     Active Substance: LITHIUM CARBONATE
     Route: 048
     Dates: start: 20200601
  11. ADEMPAS [Concomitant]
     Active Substance: RIOCIGUAT
     Indication: Pulmonary arterial hypertension
     Route: 048
     Dates: end: 20210625
  12. ADEMPAS [Concomitant]
     Active Substance: RIOCIGUAT
     Route: 048
     Dates: start: 20210626
  13. FUROSEMIDE [Concomitant]
     Active Substance: FUROSEMIDE
     Dates: end: 20190628
  14. FUROSEMIDE [Concomitant]
     Active Substance: FUROSEMIDE
     Dates: start: 20190629, end: 20201127
  15. AKINETON [Concomitant]
     Active Substance: BIPERIDEN HYDROCHLORIDE
  16. FLUNITRAZEPAM [Concomitant]
     Active Substance: FLUNITRAZEPAM
  17. BELSOMRA [Concomitant]
     Active Substance: SUVOREXANT
  18. BELSOMRA [Concomitant]
     Active Substance: SUVOREXANT
  19. BELSOMRA [Concomitant]
     Active Substance: SUVOREXANT
     Dates: start: 20200426, end: 20211225
  20. MAGNESIUM OXIDE [Concomitant]
     Active Substance: MAGNESIUM OXIDE
     Dates: end: 20200603
  21. MAGNESIUM OXIDE [Concomitant]
     Active Substance: MAGNESIUM OXIDE
     Dates: start: 20200604
  22. SODIUM PICOSULFATE [Concomitant]
     Active Substance: SODIUM PICOSULFATE
     Dates: start: 20190201
  23. SODIUM PICOSULFATE [Concomitant]
     Active Substance: SODIUM PICOSULFATE
  24. SULPIRIDE [Concomitant]
     Active Substance: SULPIRIDE
     Dates: start: 20190601
  25. SENNOSIDES A AND B [Concomitant]
     Active Substance: SENNOSIDES A AND B
     Dates: end: 20190131
  26. PRIMPERAN [Concomitant]
     Active Substance: METOCLOPRAMIDE HYDROCHLORIDE
     Dates: end: 20190510
  27. ABILIFY [Concomitant]
     Active Substance: ARIPIPRAZOLE
     Indication: Psychotic disorder
     Dates: start: 20200507, end: 20210325
  28. ABILIFY [Concomitant]
     Active Substance: ARIPIPRAZOLE
     Dates: start: 20211220
  29. VALPROATE SODIUM [Concomitant]
     Active Substance: VALPROATE SODIUM
     Indication: Psychotic disorder
     Dates: start: 20200707, end: 20211225
  30. VALPROATE SODIUM [Concomitant]
     Active Substance: VALPROATE SODIUM
     Dates: start: 20211226
  31. AZOSEMIDE [Concomitant]
     Active Substance: AZOSEMIDE
     Dates: start: 20201128
  32. SODIUM FERROUS CITRATE [Concomitant]
     Active Substance: SODIUM FERROUS CITRATE
     Indication: Anaemia
     Dates: start: 20200925, end: 20210226
  33. DIETARY SUPPLEMENT\PROBIOTICS [Concomitant]
     Active Substance: DIETARY SUPPLEMENT\PROBIOTICS
  34. DIETARY SUPPLEMENT\PROBIOTICS [Concomitant]
     Active Substance: DIETARY SUPPLEMENT\PROBIOTICS
  35. DAYVIGO [Concomitant]
     Active Substance: LEMBOREXANT
     Dates: start: 20211226

REACTIONS (2)
  - Psychotic disorder [Recovering/Resolving]
  - Silent thyroiditis [Recovering/Resolving]

NARRATIVE: CASE EVENT DATE: 20200326
